FAERS Safety Report 24105806 (Version 1)
Quarter: 2024Q3

REPORT INFORMATION
  Report Type: Spontaneous
  Country: IN (occurrence: IN)
  Receive Date: 20240717
  Receipt Date: 20240717
  Transmission Date: 20241017
  Serious: Yes (Hospitalization, Other)
  Sender: SANDOZ
  Company Number: IN-SANDOZ-SDZ2024IN028651

PATIENT
  Sex: Female

DRUGS (2)
  1. TACROLIMUS [Suspect]
     Active Substance: TACROLIMUS
     Dosage: 1 MG, BID
     Route: 048
  2. TACROLIMUS [Suspect]
     Active Substance: TACROLIMUS
     Indication: Renal transplant
     Dosage: 1.5 MG, BID
     Route: 048

REACTIONS (9)
  - Thrombocytopenia [Unknown]
  - Toxicity to various agents [Unknown]
  - Arteriovenous fistula site complication [Unknown]
  - Cough [Unknown]
  - Abdominal pain lower [Unknown]
  - Asthenia [Unknown]
  - Myalgia [Unknown]
  - Dysuria [Unknown]
  - Back pain [Unknown]
